FAERS Safety Report 7231497-X (Version None)
Quarter: 2011Q1

REPORT INFORMATION
  Report Type: 
  Country: None (occurrence: None)
  Receive Date: 20110118
  Receipt Date: 20110113
  Transmission Date: 20110831
  Serious: Yes (Death)
  Sender: FDA-Public Use
  Company Number: JP-ASTRAZENECA-2010SE32864

PATIENT
  Age: 80 Year
  Sex: Female
  Weight: 42 kg

DRUGS (14)
  1. IRESSA [Suspect]
     Indication: LUNG ADENOCARCINOMA
     Route: 048
     Dates: start: 20090904, end: 20091017
  2. VICCILLIN [Suspect]
     Indication: CELLULITIS
     Route: 041
     Dates: start: 20100203, end: 20100207
  3. PREDNISOLONE [Suspect]
     Route: 048
     Dates: start: 20100114, end: 20100208
  4. BENET [Suspect]
     Indication: OSTEOPOROSIS
     Route: 048
     Dates: end: 20100211
  5. PREDNISOLONE [Suspect]
     Route: 048
     Dates: start: 20100209, end: 20100215
  6. URSO 250 [Concomitant]
     Route: 048
  7. HOCHU-EKKI-TO [Suspect]
     Route: 048
     Dates: start: 20090903, end: 20100211
  8. GASTER D [Suspect]
     Indication: GASTRITIS
     Route: 048
     Dates: start: 20100114, end: 20100215
  9. HIRUDOID [Concomitant]
     Route: 003
  10. ALPROSTADIL [Concomitant]
     Route: 003
  11. IRESSA [Suspect]
     Route: 048
     Dates: start: 20091030, end: 20100211
  12. PHENOBAL [Suspect]
     Indication: BRAIN NEOPLASM
     Route: 048
     Dates: start: 20100114, end: 20100211
  13. ACTONEL [Concomitant]
     Route: 048
  14. ONEALFA [Suspect]
     Indication: OSTEOPOROSIS
     Route: 048
     Dates: end: 20100211

REACTIONS (2)
  - HEPATIC FUNCTION ABNORMAL [None]
  - TOXIC EPIDERMAL NECROLYSIS [None]
